FAERS Safety Report 9050973 (Version 2)
Quarter: 2013Q4

REPORT INFORMATION
  Report Type: Report from Study
  Country: US (occurrence: US)
  Receive Date: 20130205
  Receipt Date: 20131119
  Transmission Date: 20140711
  Serious: No
  Sender: FDA-Public Use
  Company Number: US-009507513-1301USA011307

PATIENT
  Age: 20 Year
  Sex: Female
  Weight: 85.26 kg

DRUGS (1)
  1. ASENAPINE MALEATE-BIPOLAR DISORDER [Suspect]
     Indication: BIPOLAR I DISORDER
     Dosage: 10 MG, BID
     Route: 060
     Dates: start: 20121221

REACTIONS (1)
  - Accidental overdose [Recovered/Resolved]
